FAERS Safety Report 22389643 (Version 1)
Quarter: 2023Q2

REPORT INFORMATION
  Report Type: Spontaneous
  Country: IN (occurrence: IN)
  Receive Date: 20230531
  Receipt Date: 20230531
  Transmission Date: 20230722
  Serious: Yes (Death, Other)
  Sender: FDA-Public Use
  Company Number: IN-PFIZER INC-PV202300092024

PATIENT
  Age: 70 Year
  Sex: Male

DRUGS (11)
  1. VORICONAZOLE [Suspect]
     Active Substance: VORICONAZOLE
     Indication: Panophthalmitis
     Dosage: 4 MG/KG
     Route: 042
  2. VORICONAZOLE [Suspect]
     Active Substance: VORICONAZOLE
     Indication: Infective keratitis
     Dosage: 200 MG, 2X/DAY
     Route: 048
  3. VANCOMYCIN HYDROCHLORIDE [Suspect]
     Active Substance: VANCOMYCIN HYDROCHLORIDE
     Indication: Panophthalmitis
     Dosage: 40 MG/KG IN 2 DIVIDED DOSES
     Route: 042
  4. MOXIFLOXACIN [Suspect]
     Active Substance: MOXIFLOXACIN
     Indication: Infective keratitis
     Dosage: UNK
     Route: 061
  5. PREDNISOLONE [Suspect]
     Active Substance: PREDNISOLONE
     Indication: Infective keratitis
     Dosage: UNK
     Route: 061
  6. CEFAZOLIN SODIUM [Suspect]
     Active Substance: CEFAZOLIN SODIUM
     Indication: Infective keratitis
     Dosage: UNK
     Route: 061
  7. TOBRAMYCIN SULFATE [Suspect]
     Active Substance: TOBRAMYCIN SULFATE
     Indication: Infective keratitis
     Dosage: UNK
     Route: 061
  8. ITRACONAZOLE [Suspect]
     Active Substance: ITRACONAZOLE
     Indication: Thrombophlebitis
     Dosage: 200 MG, 2X/DAY
     Route: 048
  9. NATAMYCIN [Suspect]
     Active Substance: NATAMYCIN
     Indication: Infective keratitis
     Dosage: UNK
     Route: 061
  10. CEFTRIAXONE [Suspect]
     Active Substance: CEFTRIAXONE
     Indication: Panophthalmitis
     Dosage: 100 MG/KG IN 2 DIVIDED DOSES
     Route: 042
  11. CASPOFUNGIN ACETATE [Suspect]
     Active Substance: CASPOFUNGIN ACETATE
     Indication: Thrombophlebitis
     Dosage: 50 MG INFUSION DAILY
     Route: 042

REACTIONS (2)
  - Off label use [Fatal]
  - Drug ineffective for unapproved indication [Fatal]
